FAERS Safety Report 4580749-0 (Version None)
Quarter: 2005Q1

REPORT INFORMATION
  Report Type: 
  Country: None (occurrence: None)
  Receive Date: 20050214
  Receipt Date: 20040525
  Transmission Date: 20050727
  Serious: No
  Sender: FDA-Public Use
  Company Number: US-GLAXOSMITHKLINE-A0512094A

PATIENT
  Age: 61 Year
  Sex: Male

DRUGS (6)
  1. LAMICTAL [Suspect]
     Indication: ILL-DEFINED DISORDER
     Dosage: 75MG PER DAY
     Route: 048
  2. LANOXIN [Concomitant]
  3. SEREVENT [Concomitant]
  4. SHARK CARTILAGE [Concomitant]
  5. ASPIRIN [Concomitant]
  6. MULTIVITAMIN [Concomitant]

REACTIONS (1)
  - CONDITION AGGRAVATED [None]
